FAERS Safety Report 5606900-9 (Version None)
Quarter: 2008Q1

REPORT INFORMATION
  Report Type: 
  Country: None (occurrence: None)
  Receive Date: 20080125
  Receipt Date: 20080118
  Transmission Date: 20080703
  Serious: Yes (Death, Hospitalization)
  Sender: FDA-Public Use
  Company Number: 2005BI006722

PATIENT
  Age: 33 Year
  Sex: Female

DRUGS (1)
  1. TYSABRI [Suspect]
     Indication: MULTIPLE SCLEROSIS
     Dosage: 300 MG; QM; IV
     Route: 042
     Dates: start: 20050112, end: 20050201

REACTIONS (8)
  - MULTIPLE SCLEROSIS [None]
  - NEUROMYELITIS OPTICA [None]
  - QUADRIPLEGIA [None]
  - RASH [None]
  - REFUSAL OF TREATMENT BY PATIENT [None]
  - URINARY RETENTION [None]
  - URINARY TRACT INFECTION [None]
  - URTICARIA [None]
